FAERS Safety Report 8342724-X (Version None)
Quarter: 2012Q2

REPORT INFORMATION
  Report Type: 
  Country: None (occurrence: None)
  Receive Date: 20120503
  Receipt Date: 20120416
  Transmission Date: 20120825
  Serious: Yes (Life-Threatening, Other)
  Sender: FDA-Public Use
  Company Number: 20120245

PATIENT
  Age: 61 Year
  Sex: Male

DRUGS (1)
  1. ADENOSINE INJECTION, USP (6404-10) 3 MG/ML [Suspect]
     Indication: CARDIOVASCULAR DISORDER
     Dosage: 100 MCG INTRACORONARY
     Route: 022

REACTIONS (3)
  - ATRIOVENTRICULAR BLOCK COMPLETE [None]
  - TORSADE DE POINTES [None]
  - RHYTHM IDIOVENTRICULAR [None]
